FAERS Safety Report 6449989-X (Version None)
Quarter: 2009Q4

REPORT INFORMATION
  Report Type: 
  Country: None (occurrence: None)
  Receive Date: 20091123
  Receipt Date: 20091116
  Transmission Date: 20100525
  Serious: Yes (Other)
  Sender: FDA-Public Use
  Company Number: CA-ALLERGAN-0910615US

PATIENT
  Age: 40 Year
  Sex: Female

DRUGS (5)
  1. BOTOX [Suspect]
     Indication: BLADDER DISORDER
     Dosage: 300 UNITS, UNK
  2. BOTOX [Suspect]
     Dosage: 200 UNITS, SINGLE
  3. BOTOX [Suspect]
     Dosage: 250 UNITS, SINGLE
  4. BOTOX [Suspect]
     Dosage: 250 UNK, UNK
  5. BOTOX [Suspect]
     Dosage: 200 UNITS, SINGLE

REACTIONS (1)
  - ACTIVITIES OF DAILY LIVING IMPAIRED [None]
